FAERS Safety Report 8115394-3 (Version None)
Quarter: 2012Q1

REPORT INFORMATION
  Report Type: 
  Country: None (occurrence: None)
  Receive Date: 20120206
  Receipt Date: 20120206
  Transmission Date: 20120608
  Serious: Yes (Hospitalization, Other)
  Sender: FDA-Public Use
  Company Number: None

PATIENT
  Age: 30 Year
  Sex: Male
  Weight: 84.368 kg

DRUGS (1)
  1. PROPRANOLOL HCL [Suspect]
     Indication: ANXIETY
     Route: 048
     Dates: start: 20120117, end: 20120202

REACTIONS (3)
  - ABDOMINAL DISTENSION [None]
  - HYPOGLYCAEMIA [None]
  - HYPOAESTHESIA [None]
